FAERS Safety Report 6232925-9 (Version None)
Quarter: 2009Q2

REPORT INFORMATION
  Report Type: 
  Country: None (occurrence: None)
  Receive Date: 20090612
  Receipt Date: 20090612
  Transmission Date: 20091009
  Serious: Yes (Other)
  Sender: FDA-Public Use
  Company Number: None

PATIENT
  Age: 53 Year
  Sex: Female
  Weight: 65.318 kg

DRUGS (2)
  1. LEVAQUIN [Suspect]
     Indication: URINARY TRACT INFECTION
     Dosage: 750 MG 1 TIME PO
     Route: 048
     Dates: start: 20090504, end: 20090504
  2. LEVAQUIN [Suspect]
     Indication: URINARY TRACT INFECTION
     Dosage: 250 MG ONCE A DAY 7 DAYS PO
     Route: 048
     Dates: start: 20090508, end: 20090515

REACTIONS (13)
  - ARTHRALGIA [None]
  - BURNING SENSATION [None]
  - DISTURBANCE IN ATTENTION [None]
  - FATIGUE [None]
  - FEELING ABNORMAL [None]
  - GAIT DISTURBANCE [None]
  - HYPOAESTHESIA [None]
  - MALAISE [None]
  - PAIN IN EXTREMITY [None]
  - PARAESTHESIA [None]
  - RHEUMATOID ARTHRITIS [None]
  - URINARY TRACT INFECTION [None]
  - VISUAL ACUITY REDUCED [None]
